FAERS Safety Report 24968477 (Version 1)
Quarter: 2025Q1

REPORT INFORMATION
  Report Type: Report from Study
  Country: CA (occurrence: CA)
  Receive Date: 20250214
  Receipt Date: 20250214
  Transmission Date: 20250408
  Serious: Yes (Other)
  Sender: DR REDDYS
  Company Number: CA-DRL-USA-CAN/2025/02/002046

PATIENT
  Sex: Female

DRUGS (6)
  1. ZOLEDRONIC ACID [Suspect]
     Active Substance: ZOLEDRONIC ACID
     Indication: Osteoporosis
     Dosage: DOSE: 5MG/100ML
     Route: 065
     Dates: start: 20190715, end: 20190715
  2. ZOLEDRONIC ACID [Suspect]
     Active Substance: ZOLEDRONIC ACID
     Dosage: DOSE: 5MG/100ML
     Route: 065
     Dates: start: 20210112, end: 20210112
  3. ZOLEDRONIC ACID [Suspect]
     Active Substance: ZOLEDRONIC ACID
     Dosage: DOSE: 5MG/100ML
     Route: 065
     Dates: start: 20220208, end: 20220208
  4. ZOLEDRONIC ACID [Suspect]
     Active Substance: ZOLEDRONIC ACID
     Dosage: DOSE: 5MG/100ML
     Route: 065
     Dates: start: 20230108, end: 20230108
  5. ZOLEDRONIC ACID [Suspect]
     Active Substance: ZOLEDRONIC ACID
     Dosage: DOSE: 5MG/100ML
     Route: 065
     Dates: start: 20240223, end: 20240223
  6. CIPROFLOXACIN [Concomitant]
     Active Substance: CIPROFLOXACIN
     Indication: Cystitis
     Route: 065
     Dates: start: 202411

REACTIONS (3)
  - Fall [Unknown]
  - Hip fracture [Unknown]
  - Cystitis [Unknown]
